FAERS Safety Report 23464774 (Version 1)
Quarter: 2024Q1

REPORT INFORMATION
  Report Type: Other
  Country: DE (occurrence: DE)
  Receive Date: 20240201
  Receipt Date: 20240201
  Transmission Date: 20240410
  Serious: Yes (Hospitalization, Other)
  Sender: FDA-Public Use
  Company Number: DE-MACLEODS PHARMACEUTICALS US LTD-MAC2024045513

PATIENT

DRUGS (3)
  1. OLMESARTAN [Interacting]
     Active Substance: OLMESARTAN
     Indication: Product used for unknown indication
     Dosage: 20 MILLIGRAM, QD, EVERY MORNING
     Route: 065
  2. AMLODIPINE BESYLATE\OLMESARTAN MEDOXOMIL [Interacting]
     Active Substance: AMLODIPINE BESYLATE\OLMESARTAN MEDOXOMIL
     Indication: Product used for unknown indication
     Dosage: UNK UNK, QD (40/5, EVERY MORNING
     Route: 065
  3. JANUVIA [Concomitant]
     Active Substance: SITAGLIPTIN PHOSPHATE
     Indication: Product used for unknown indication
     Dosage: 100 MILLIGRAM, QD, EVERY MORNING
     Route: 065

REACTIONS (14)
  - Anaphylactic shock [Unknown]
  - Myocardial infarction [Unknown]
  - Anxiety [Unknown]
  - Peripheral coldness [Unknown]
  - Feeling hot [Unknown]
  - Sense of oppression [Recovered/Resolved]
  - Panic attack [Unknown]
  - Tremor [Unknown]
  - Diarrhoea [Unknown]
  - Cardiac discomfort [Recovering/Resolving]
  - Gingivitis [Unknown]
  - Malaise [Unknown]
  - Hyperhidrosis [Not Recovered/Not Resolved]
  - Drug interaction [Unknown]
